FAERS Safety Report 5358248-8 (Version None)
Quarter: 2007Q2

REPORT INFORMATION
  Report Type: 
  Country: None (occurrence: None)
  Receive Date: 20070613
  Receipt Date: 20070531
  Transmission Date: 20071010
  Serious: Yes (Other)
  Sender: FDA-Public Use
  Company Number: APP200700128

PATIENT
  Age: 40 Year
  Sex: Female

DRUGS (2)
  1. MITOXANTRONE HCL [Suspect]
     Indication: MULTIPLE SCLEROSIS
     Dosage: 0.1333 MG/M2 (12 MG/M2, 1 IN 3 M), INJECTION
  2. INTERFERON 1B (INTERFERON) [Concomitant]

REACTIONS (6)
  - ACUTE LYMPHOCYTIC LEUKAEMIA [None]
  - B PRECURSOR TYPE ACUTE LEUKAEMIA [None]
  - BLAST CELLS PRESENT [None]
  - FATIGUE [None]
  - MYOCARDIAL INFARCTION [None]
  - PANCYTOPENIA [None]
